FAERS Safety Report 5404277-5 (Version None)
Quarter: 2007Q3

REPORT INFORMATION
  Report Type: 
  Country: None (occurrence: None)
  Receive Date: 20070802
  Receipt Date: 20070726
  Transmission Date: 20080115
  Serious: Yes (Life-Threatening, Other)
  Sender: FDA-Public Use
  Company Number: US-BAYER-200615198BWH

PATIENT
  Age: 76 Year
  Sex: Male

DRUGS (12)
  1. NEXAVAR [Suspect]
     Indication: RENAL CELL CARCINOMA STAGE UNSPECIFIED
     Dosage: TOTAL DAILY DOSE: 800 MG  UNIT DOSE: 200 MG
     Route: 048
     Dates: start: 20060729, end: 20060811
  2. NEXAVAR [Suspect]
     Dosage: TOTAL DAILY DOSE: 400 MG  UNIT DOSE: 200 MG
     Route: 048
     Dates: start: 20060814, end: 20060914
  3. GLYBURIDE [Concomitant]
  4. ACTOS [Concomitant]
  5. NORVASC [Concomitant]
  6. ATENOLOL [Concomitant]
  7. ZOLOFT [Concomitant]
  8. LIPITOR [Concomitant]
  9. AMBIEN [Concomitant]
  10. ZYRTEC [Concomitant]
  11. ALLOPURINOL [Concomitant]
  12. NIACIN [Concomitant]

REACTIONS (12)
  - ALOPECIA [None]
  - ANOREXIA [None]
  - BACK PAIN [None]
  - DEHYDRATION [None]
  - DIARRHOEA [None]
  - FAECAL INCONTINENCE [None]
  - FATIGUE [None]
  - IDIOPATHIC THROMBOCYTOPENIC PURPURA [None]
  - MUSCULOSKELETAL CHEST PAIN [None]
  - OEDEMA PERIPHERAL [None]
  - PLATELET COUNT DECREASED [None]
  - RASH [None]
